FAERS Safety Report 5533173-8 (Version None)
Quarter: 2007Q4

REPORT INFORMATION
  Report Type: 
  Country: None (occurrence: None)
  Receive Date: 20071204
  Receipt Date: 20071127
  Transmission Date: 20080405
  Serious: Yes (Hospitalization)
  Sender: FDA-Public Use
  Company Number: US-ROCHE-533663

PATIENT
  Age: 58 Year
  Sex: Female

DRUGS (2)
  1. CAPECITABINE [Suspect]
     Dosage: FREQUENCY NOT REPORTED
     Route: 048
     Dates: start: 20070807
  2. BLINDED BEVACIZUMAB [Suspect]
     Dosage: FREQUENCY REPORTED AS EVERY 3 WEEKS
     Route: 042
     Dates: start: 20070807

REACTIONS (1)
  - HYPOGLYCAEMIA [None]
